FAERS Safety Report 26152855 (Version 1)
Quarter: 2025Q4

REPORT INFORMATION
  Report Type: Spontaneous
  Country: US (occurrence: US)
  Receive Date: 20251214
  Receipt Date: 20251214
  Transmission Date: 20260117
  Serious: No
  Sender: RECORDATI
  Company Number: US-RECORDATI RARE DISEASE INC.-2025002762

PATIENT
  Age: 40 Year
  Sex: Female
  Weight: 92.971 kg

DRUGS (6)
  1. SIGNIFOR [Suspect]
     Active Substance: PASIREOTIDE DIASPARTATE
     Indication: Cushing^s syndrome
     Dosage: 0.3 MG/ML, BID (0.3 MG/ML AMPOULE (60/BX)
     Route: 058
     Dates: start: 20250411
  2. SYNTHROID [Concomitant]
     Active Substance: LEVOTHYROXINE SODIUM
     Indication: Product used for unknown indication
     Dosage: 50 MICROGRAM, QD (50 MCG TABLET)
     Route: 048
  3. VITAMIN D3 [Concomitant]
     Active Substance: CHOLECALCIFEROL
     Indication: Product used for unknown indication
     Dosage: 125 MICROGRAM, QD (125 MCG [500] TABLET)
     Route: 048
  4. MAGNESIUM OXIDE [Concomitant]
     Active Substance: MAGNESIUM OXIDE
     Indication: Product used for unknown indication
     Dosage: 400 MILLIGRAM, QD (400 MG TABLET)
     Route: 048
  5. HERBALS\WITHANIA SOMNIFERA ROOT [Concomitant]
     Active Substance: HERBALS\WITHANIA SOMNIFERA ROOT
     Indication: Product used for unknown indication
     Dosage: 500 MILLIGRAM, QD (CHEWABLE TABLET)
     Route: 048
  6. OZEMPIC [Concomitant]
     Active Substance: SEMAGLUTIDE
     Indication: Product used for unknown indication
     Dosage: 2 MG/1.5 ML, QW (0.25 OR 0.5 MG/DOSE)
     Route: 058

REACTIONS (2)
  - Injection site pruritus [Not Recovered/Not Resolved]
  - Product packaging difficult to open [Recovered/Resolved]

NARRATIVE: CASE EVENT DATE: 20250411
